FAERS Safety Report 15981220 (Version 2)
Quarter: 2019Q1

REPORT INFORMATION
  Report Type: Spontaneous
  Country: JP (occurrence: JP)
  Receive Date: 20190219
  Receipt Date: 20190222
  Transmission Date: 20190418
  Serious: Yes (Other)
  Sender: FDA-Public Use
  Company Number: JP-PFIZER INC-2019069468

PATIENT
  Age: 56 Year
  Sex: Male

DRUGS (8)
  1. OXALIPLATIN. [Suspect]
     Active Substance: OXALIPLATIN
     Indication: COLON CANCER
     Dosage: 85 MG/M2, 2 HOURS, CYCLIC
  2. 5-FU [FLUOROURACIL] [Concomitant]
     Active Substance: FLUOROURACIL
     Dosage: 400 MG/M2 (REDUCED TO 80%)
  3. OXALIPLATIN. [Suspect]
     Active Substance: OXALIPLATIN
     Dosage: 85 MG/M2 2 H (REDUCED TO 80%)
  4. LEVOLEUCOVORIN [LEVOFOLINIC ACID] [Concomitant]
     Indication: COLON CANCER
     Dosage: 200MG/M2, 2 HOURS, CYCLIC
  5. 5-FU [FLUOROURACIL] [Concomitant]
     Active Substance: FLUOROURACIL
     Indication: COLON CANCER
     Dosage: 400 MG/M2, CYCLIC
     Route: 040
  6. LEVOLEUCOVORIN [LEVOFOLINIC ACID] [Concomitant]
     Dosage: 200 MG/M2 2 H (REDUCED TO 80%)
  7. 5-FU [FLUOROURACIL] [Concomitant]
     Active Substance: FLUOROURACIL
     Dosage: 400 MG/M2, 46 HOURS, CYCLIC
  8. 5-FU [FLUOROURACIL] [Concomitant]
     Active Substance: FLUOROURACIL
     Dosage: 2400 MG/M2 46 H (REDUCED TO 80%)

REACTIONS (3)
  - Thrombocytopenia [Recovered/Resolved]
  - Neuropathy peripheral [Recovering/Resolving]
  - Splenomegaly [Unknown]
